FAERS Safety Report 4324732-9 (Version None)
Quarter: 2004Q1

REPORT INFORMATION
  Report Type: 
  Country: None (occurrence: None)
  Receive Date: 20040326
  Receipt Date: 20020516
  Transmission Date: 20041129
  Serious: Yes (Hospitalization, Disabling)
  Sender: FDA-Public Use
  Company Number: WAES 0205USA02092

PATIENT
  Age: 55 Year
  Sex: Female
  Weight: 77 kg

DRUGS (9)
  1. SOMA [Concomitant]
  2. MOTRIN [Concomitant]
  3. VIOXX [Suspect]
     Indication: PAIN
     Route: 048
     Dates: end: 20001001
  4. VIOXX [Suspect]
     Route: 048
     Dates: start: 20001025
  5. VIOXX [Suspect]
     Route: 048
     Dates: start: 20010101, end: 20010710
  6. VIOXX [Suspect]
     Indication: ARTHRITIS
     Route: 048
     Dates: end: 20001001
  7. VIOXX [Suspect]
     Route: 048
     Dates: start: 20001025
  8. VIOXX [Suspect]
     Route: 048
     Dates: start: 20010101, end: 20010710
  9. LAMISIL [Concomitant]
     Indication: ONYCHOMYCOSIS

REACTIONS (25)
  - AORTIC CALCIFICATION [None]
  - ARTHRITIS [None]
  - ATAXIA [None]
  - BALANCE DISORDER [None]
  - BLOOD CHOLESTEROL INCREASED [None]
  - BLOOD PRESSURE SYSTOLIC INCREASED [None]
  - CARDIOMEGALY [None]
  - CAROTID ARTERY STENOSIS [None]
  - CEREBROVASCULAR ACCIDENT [None]
  - CHEST PAIN [None]
  - CHONDROMALACIA [None]
  - COUGH [None]
  - DEPRESSION [None]
  - DYSPHAGIA [None]
  - FALL [None]
  - HEMIPARESIS [None]
  - HYPERTENSION [None]
  - IMPAIRED WORK ABILITY [None]
  - LYMPHOEDEMA [None]
  - MASTOIDITIS [None]
  - MUCOSAL MEMBRANE HYPERPLASIA [None]
  - NAUSEA [None]
  - OEDEMA PERIPHERAL [None]
  - SPEECH DISORDER [None]
  - TREATMENT NONCOMPLIANCE [None]
